FAERS Safety Report 5452199-6 (Version None)
Quarter: 2007Q3

REPORT INFORMATION
  Report Type: 
  Country: None (occurrence: None)
  Receive Date: 20070914
  Receipt Date: 20070910
  Transmission Date: 20080115
  Serious: Yes (Life-Threatening, Hospitalization)
  Sender: FDA-Public Use
  Company Number: PHBS2007US14856

PATIENT
  Age: 37 Year
  Sex: Female

DRUGS (4)
  1. NIFEDIPINE [Concomitant]
  2. FUROSEMIDE [Concomitant]
  3. GENERAL ANAESTHETICS, OTHER [Concomitant]
  4. METOPROLOL SUCCINATE [Suspect]

REACTIONS (29)
  - ABDOMINAL PAIN [None]
  - BLOOD CALCIUM INCREASED [None]
  - BLOOD CREATINE PHOSPHOKINASE INCREASED [None]
  - BLOOD CREATININE INCREASED [None]
  - BLOOD GLUCOSE INCREASED [None]
  - BLOOD LACTIC ACID INCREASED [None]
  - BLOOD MAGNESIUM INCREASED [None]
  - BLOOD PHOSPHORUS INCREASED [None]
  - BLOOD SODIUM DECREASED [None]
  - BLOOD UREA INCREASED [None]
  - CAESAREAN SECTION [None]
  - DRUG EXPOSURE DURING PREGNANCY [None]
  - ELECTROCARDIOGRAM Q WAVE ABNORMAL [None]
  - ELECTROCARDIOGRAM T WAVE AMPLITUDE INCREASED [None]
  - FOETAL HEART RATE ABNORMAL [None]
  - HAEMATOCRIT DECREASED [None]
  - HAEMOGLOBIN DECREASED [None]
  - HEART RATE INCREASED [None]
  - HYPERKALAEMIA [None]
  - INTRA-UTERINE DEATH [None]
  - LABORATORY TEST ABNORMAL [None]
  - NAUSEA [None]
  - PERITONEAL HAEMORRHAGE [None]
  - PROTEIN URINE PRESENT [None]
  - SURGERY [None]
  - TACHYCARDIA [None]
  - URINE KETONE BODY PRESENT [None]
  - UTERINE RUPTURE [None]
  - WHITE BLOOD CELL COUNT INCREASED [None]
